FAERS Safety Report 8059245-4 (Version None)
Quarter: 2012Q1

REPORT INFORMATION
  Report Type: 
  Country: None (occurrence: None)
  Receive Date: 20120113
  Receipt Date: 20120105
  Transmission Date: 20120608
  Serious: Yes (Disabling, Other)
  Sender: FDA-Public Use
  Company Number: 2011MA002908

PATIENT
  Sex: Female

DRUGS (48)
  1. AVINZA [Concomitant]
  2. GLIPIZIDE [Concomitant]
  3. MORPHINE SULFATE [Concomitant]
  4. LANTUS [Concomitant]
  5. OMEPRAZOLE [Concomitant]
  6. EFFEXOR XR [Concomitant]
  7. METHOCARBAMOL [Concomitant]
  8. THEOPHYLLINE-SR [Concomitant]
  9. TOPAMAX [Concomitant]
  10. METOCLOPRAMIDE [Suspect]
     Indication: GASTROINTESTINAL DISORDER
     Dosage: 10 MG;BID;PO
     Route: 048
     Dates: start: 20050113, end: 20100809
  11. ASACOL [Concomitant]
  12. CARTIA XT [Concomitant]
  13. CHANTIX [Concomitant]
  14. LEVAQUIN [Concomitant]
  15. WELLBUTRIN SR [Concomitant]
  16. AMBIEN CR [Concomitant]
  17. PROMETHAZINE [Concomitant]
  18. AMOXICILLIN [Concomitant]
  19. DILTIAZEM HCL [Concomitant]
  20. RISPERDAL [Concomitant]
  21. CEFPODOXIME PROXETIL [Concomitant]
  22. FUROSEMIDE [Concomitant]
  23. LEXAPRO [Concomitant]
  24. METHADONE HCL [Concomitant]
  25. PROAIR HFA [Concomitant]
  26. ALPRAZOLAM [Concomitant]
  27. CIPROFLOXACIN [Concomitant]
  28. CITALOPRAM HYDROBROMIDE [Concomitant]
  29. HYDROCODONE BITARTRATE AND ACETAMINOPHEN [Concomitant]
  30. LIPITOR [Concomitant]
  31. LISINOPRIL [Concomitant]
  32. METRONIDAZOLE [Concomitant]
  33. HANDIHALER [Concomitant]
  34. TIZANIDINE HCL [Concomitant]
  35. TRAMADOL HCL [Concomitant]
  36. TRICOR [Concomitant]
  37. ZONISAMIDE [Concomitant]
  38. AVANDIA [Concomitant]
  39. COMBIVENT [Concomitant]
  40. GABAPENTIN [Concomitant]
  41. KLOR-CON [Concomitant]
  42. LUNESTA [Concomitant]
  43. METFORMIN HCL [Concomitant]
  44. MUCINEX DM ER [Concomitant]
  45. PROTONIX [Concomitant]
  46. ROZEREM [Concomitant]
  47. SEROQUEL [Concomitant]
  48. SPIRIVA [Concomitant]

REACTIONS (8)
  - ANXIETY [None]
  - EXCESSIVE EYE BLINKING [None]
  - PROTRUSION TONGUE [None]
  - PAIN [None]
  - FAMILY STRESS [None]
  - ECONOMIC PROBLEM [None]
  - EXTRAPYRAMIDAL DISORDER [None]
  - TARDIVE DYSKINESIA [None]
